FAERS Safety Report 9349967 (Version 1)
Quarter: 2013Q2

REPORT INFORMATION
  Report Type: Report from Study
  Country: US (occurrence: US)
  Receive Date: 20130614
  Receipt Date: 20130614
  Transmission Date: 20140414
  Serious: Yes (Other)
  Sender: FDA-Public Use
  Company Number: PHEH2013US012765

PATIENT
  Sex: Female

DRUGS (6)
  1. GILENYA [Suspect]
     Indication: MULTIPLE SCLEROSIS
     Dosage: 0.5 MG, QD
     Route: 048
     Dates: start: 20130430
  2. DIMETHYL FUMARATE [Concomitant]
     Dosage: UNK UKN, UNK
  3. NATURAL VITAMIN D [Concomitant]
     Dosage: UNK UKN, UNK
  4. TRAMADOL [Concomitant]
     Dosage: UNK UKN, UNK
  5. TIZANIDINE [Concomitant]
     Dosage: UNK UKN, UNK
  6. MULTIVITAMINS [Concomitant]

REACTIONS (2)
  - Optic neuritis [Unknown]
  - Visual impairment [Unknown]
